FAERS Safety Report 5015925-6 (Version None)
Quarter: 2006Q2

REPORT INFORMATION
  Report Type: 
  Country: None (occurrence: None)
  Receive Date: 20060525
  Receipt Date: 20060512
  Transmission Date: 20061013
  Serious: Yes (Death, Hospitalization)
  Sender: FDA-Public Use
  Company Number: CERZ-10398

PATIENT
  Age: 54 Year
  Sex: Male

DRUGS (4)
  1. CEREZYME [Suspect]
     Indication: GAUCHER'S DISEASE
     Dosage: 60 U/KG Q2WKS IV
     Route: 042
     Dates: start: 19970205, end: 20060320
  2. ALDACTONE [Concomitant]
  3. HYPERIUM [Concomitant]
  4. AMLOR [Concomitant]

REACTIONS (14)
  - ABDOMINAL PAIN UPPER [None]
  - ADENOCARCINOMA [None]
  - ARTERIAL RUPTURE [None]
  - CARBOHYDRATE ANTIGEN 19-9 INCREASED [None]
  - DISCOMFORT [None]
  - GALLBLADDER CANCER [None]
  - GRANULOMA [None]
  - HAEMODYNAMIC INSTABILITY [None]
  - HAEMOGLOBIN DECREASED [None]
  - HEPATIC STEATOSIS [None]
  - INTRA-ABDOMINAL HAEMORRHAGE [None]
  - METASTASES TO LIVER [None]
  - METASTASES TO LYMPH NODES [None]
  - RECTAL HAEMORRHAGE [None]
